FAERS Safety Report 6701815-7 (Version None)
Quarter: 2010Q2

REPORT INFORMATION
  Report Type: 
  Country: None (occurrence: None)
  Receive Date: 20100429
  Receipt Date: 20100422
  Transmission Date: 20101027
  Serious: Yes (Disabling, Other)
  Sender: FDA-Public Use
  Company Number: CH-GENZYME-THYR-1000279

PATIENT
  Sex: Female
  Weight: 60 kg

DRUGS (3)
  1. THYROGEN [Suspect]
     Indication: THERAPEUTIC PROCEDURE
     Dosage: 0.9 MG, QD
     Route: 065
     Dates: start: 20091210, end: 20091211
  2. IODINE (131 I) [Suspect]
     Indication: THERAPEUTIC PROCEDURE
     Dosage: 100 MCI, ONCE
     Route: 065
     Dates: start: 20091201, end: 20091201
  3. LEVOTHYROXINE SODIUM [Concomitant]
     Indication: DRUG USE FOR UNKNOWN INDICATION
     Dosage: 125 MCG, QD

REACTIONS (1)
  - TENDON DISORDER [None]
